FAERS Safety Report 10302535 (Version 2)
Quarter: 2014Q4

REPORT INFORMATION
  Report Type: Report from Study
  Country: JP (occurrence: JP)
  Receive Date: 20140714
  Receipt Date: 20141010
  Transmission Date: 20150528
  Serious: Yes (Death, Other)
  Sender: FDA-Public Use
  Company Number: PHHY2011JP120651

PATIENT
  Age: 44 Year
  Sex: Female

DRUGS (1)
  1. AFINITOR [Suspect]
     Active Substance: EVEROLIMUS
     Indication: RENAL CELL CARCINOMA
     Dosage: 10 MG, DAILY
     Route: 048
     Dates: start: 20100623, end: 20100928

REACTIONS (3)
  - Dyspnoea [Unknown]
  - Lymphangiosis carcinomatosa [Fatal]
  - Metastases to lung [Unknown]

NARRATIVE: CASE EVENT DATE: 20100928
